FAERS Safety Report 6658997-5 (Version None)
Quarter: 2010Q1

REPORT INFORMATION
  Report Type: 
  Country: None (occurrence: None)
  Receive Date: 20100330
  Receipt Date: 20100315
  Transmission Date: 20100710
  Serious: No
  Sender: FDA-Public Use
  Company Number: US-BIOGENIDEC-2010BI008888

PATIENT
  Age: 44 Year
  Sex: Female

DRUGS (2)
  1. TYSABRI [Suspect]
     Indication: MULTIPLE SCLEROSIS
     Route: 042
     Dates: start: 20070507, end: 20090116
  2. TYSABRI [Suspect]
     Route: 042
     Dates: start: 20090414

REACTIONS (3)
  - EAR HAEMORRHAGE [None]
  - EAR INFECTION [None]
  - TYMPANIC MEMBRANE PERFORATION [None]
